FAERS Safety Report 5268040-0 (Version None)
Quarter: 2007Q1

REPORT INFORMATION
  Report Type: 
  Country: None (occurrence: None)
  Receive Date: 20070319
  Receipt Date: 20070306
  Transmission Date: 20070707
  Serious: Yes (Other)
  Sender: FDA-Public Use
  Company Number: AU-NOVOPROD-260535

PATIENT
  Age: 63 Year
  Sex: Male
  Weight: 114 kg

DRUGS (11)
  1. NOVOLOG MIX 70/30 [Suspect]
     Route: 058
     Dates: start: 20040401
  2. KARVEA [Concomitant]
     Indication: HYPERTENSION
     Dosage: 300 MG, QD
     Route: 048
  3. DIAFORMIN [Concomitant]
     Indication: DIABETES MELLITUS
     Dosage: 1700 MG, QD
     Route: 048
  4. BETALOC                            /00376902/ [Concomitant]
     Indication: HYPERTENSION
     Dosage: 100 MG, UNK
     Route: 048
     Dates: start: 20040505
  5. ZOTON [Concomitant]
     Dosage: 20 MG, UNK
     Route: 048
     Dates: start: 20040718, end: 20070120
  6. PANODIL [Concomitant]
  7. ENDONE [Concomitant]
  8. ZOCOR [Concomitant]
     Dosage: 40 MG, UNK
     Route: 048
     Dates: start: 20020101, end: 20070120
  9. OMEPRAZOL                          /00661201/ [Concomitant]
     Dates: start: 20070120
  10. PROGOUT [Concomitant]
     Dosage: 100 MG, QD
     Route: 048
     Dates: start: 20060127
  11. ACLIN [Concomitant]
     Dosage: 100 MG, QD
     Route: 048
     Dates: start: 20060110, end: 20070120

REACTIONS (5)
  - ANGIOEDEMA [None]
  - GENERALISED ERYTHEMA [None]
  - RASH MACULAR [None]
  - RASH PRURITIC [None]
  - SWELLING [None]
